FAERS Safety Report 20064218 (Version 1)
Quarter: 2021Q4

REPORT INFORMATION
  Report Type: Spontaneous
  Country: PL (occurrence: PL)
  Receive Date: 20211112
  Receipt Date: 20211112
  Transmission Date: 20220303
  Serious: Yes (Life-Threatening)
  Sender: FDA-Public Use
  Company Number: None

PATIENT
  Age: 23 Year
  Sex: Female
  Weight: 58 kg

DRUGS (1)
  1. ALPRAZOLAM [Suspect]
     Active Substance: ALPRAZOLAM
     Route: 048
     Dates: start: 20210904, end: 20210904

REACTIONS (7)
  - Overdose [Unknown]
  - Suicide attempt [Unknown]
  - Drug abuse [Unknown]
  - Toxicity to various agents [Unknown]
  - Somnolence [Unknown]
  - Psychomotor retardation [Unknown]
  - Dysarthria [Unknown]

NARRATIVE: CASE EVENT DATE: 20210904
